FAERS Safety Report 13479117 (Version 3)
Quarter: 2017Q2

REPORT INFORMATION
  Report Type: Spontaneous
  Country: US (occurrence: US)
  Receive Date: 20170425
  Receipt Date: 20170510
  Transmission Date: 20170830
  Serious: Yes (Hospitalization)
  Sender: FDA-Public Use
  Company Number: US-LUNDBECK-DKLU2029688

PATIENT
  Age: 83 Year
  Sex: Male

DRUGS (4)
  1. NORTHERA [Suspect]
     Active Substance: DROXIDOPA
     Indication: NEURODEGENERATIVE DISORDER
     Dosage: SCHEDULE B AND TITRATING
     Route: 048
     Dates: start: 20170413, end: 20170415
  2. NORTHERA [Suspect]
     Active Substance: DROXIDOPA
     Dosage: 48 HOUR TITRATION
     Route: 048
     Dates: start: 20170410
  3. NORTHERA [Suspect]
     Active Substance: DROXIDOPA
     Route: 048
     Dates: start: 20170413, end: 20170424
  4. NORTHERA [Suspect]
     Active Substance: DROXIDOPA
     Route: 048
     Dates: start: 20170415, end: 20170415

REACTIONS (3)
  - Tremor [Unknown]
  - Drug intolerance [Unknown]
  - Hallucination [Unknown]

NARRATIVE: CASE EVENT DATE: 20170415
